FAERS Safety Report 6175750-X (Version None)
Quarter: 2009Q2

REPORT INFORMATION
  Report Type: 
  Country: None (occurrence: None)
  Receive Date: 20090501
  Receipt Date: 20090423
  Transmission Date: 20091009
  Serious: Yes (Other)
  Sender: FDA-Public Use
  Company Number: FR-JNJFOC-20090100712

PATIENT
  Age: 50 Year
  Sex: Male

DRUGS (6)
  1. REMICADE [Suspect]
     Route: 042
  2. REMICADE [Suspect]
     Dosage: 15TH  INFUSION
     Route: 042
  3. REMICADE [Suspect]
     Dosage: 14TH INFUSION
     Route: 042
  4. REMICADE [Suspect]
     Dosage: 13TH INFUSION
     Route: 042
  5. REMICADE [Suspect]
     Route: 042
  6. REMICADE [Suspect]
     Indication: COLITIS ULCERATIVE
     Dosage: 3 INFUSIONS FROM THEN TO JAN-2007
     Route: 042

REACTIONS (3)
  - ANOSMIA [None]
  - EXPOSURE TO CHEMICAL POLLUTION [None]
  - PAROSMIA [None]
